FAERS Safety Report 19868750 (Version 1)
Quarter: 2021Q3

REPORT INFORMATION
  Report Type: Spontaneous
  Country: CN (occurrence: CN)
  Receive Date: 20210921
  Receipt Date: 20210921
  Transmission Date: 20211014
  Serious: Yes (Hospitalization)
  Sender: FDA-Public Use
  Company Number: CN-BAXTER-2021BAX029506

PATIENT
  Age: 46 Year
  Sex: Female
  Weight: 66.6 kg

DRUGS (4)
  1. 0.9% SODIUM CHLORIDE INJECTION [Suspect]
     Active Substance: SODIUM CHLORIDE
     Indication: MEDICATION DILUTION
     Dosage: ENDOXAN 0.40G + 0.9% SODIUM CHLORIDE 250 ML
     Route: 041
     Dates: start: 20210817, end: 20210817
  2. 0.9% SODIUM CHLORIDE INJECTION [Suspect]
     Active Substance: SODIUM CHLORIDE
     Dosage: ENDOXAN 0.40G + 0.9% SODIUM CHLORIDE 250 ML
     Route: 041
     Dates: start: 20210819, end: 20210819
  3. ENDOXAN [Suspect]
     Active Substance: CYCLOPHOSPHAMIDE
     Indication: NEPHROTIC SYNDROME
     Dosage: ENDOXAN 0.40G + 0.9% SODIUM CHLORIDE 250 ML
     Route: 041
     Dates: start: 20210819, end: 20210819
  4. ENDOXAN [Suspect]
     Active Substance: CYCLOPHOSPHAMIDE
     Indication: FOCAL SEGMENTAL GLOMERULOSCLEROSIS
     Dosage: ENDOXAN 0.40G + 0.9% SODIUM CHLORIDE 250 ML
     Route: 041
     Dates: start: 20210817, end: 20210817

REACTIONS (1)
  - Hepatic function abnormal [Recovered/Resolved]

NARRATIVE: CASE EVENT DATE: 20210909
